FAERS Safety Report 21840578 (Version 2)
Quarter: 2023Q1

REPORT INFORMATION
  Report Type: Report from Study
  Country: CA (occurrence: CA)
  Receive Date: 20230110
  Receipt Date: 20230127
  Transmission Date: 20230417
  Serious: Yes (Other)
  Sender: FDA-Public Use
  Company Number: CA-JNJFOC-20220962774

PATIENT
  Age: 53 Year
  Sex: Female
  Weight: 115 kg

DRUGS (2)
  1. STELARA [Suspect]
     Active Substance: USTEKINUMAB
     Indication: Crohn^s disease
     Dosage: ON 01-APR-2021, PATIENT ALSO RECEIVED STELARA DOSE
     Route: 058
     Dates: start: 20210325
  2. STELARA [Suspect]
     Active Substance: USTEKINUMAB
     Dosage: 520MG IV ASAP AND THEN STELARA 90MG SC WEEK 8 AND EVERY 8 WEEKS
     Route: 042

REACTIONS (4)
  - Chemotherapy [Unknown]
  - Thyroid operation [Unknown]
  - Poor venous access [Unknown]
  - Drug level decreased [Unknown]

NARRATIVE: CASE EVENT DATE: 20221001
